FAERS Safety Report 10189831 (Version 2)
Quarter: 2014Q2

REPORT INFORMATION
  Report Type: Spontaneous
  Country: US (occurrence: US)
  Receive Date: 20140522
  Receipt Date: 20140625
  Transmission Date: 20141212
  Serious: Yes (Hospitalization, Other)
  Sender: FDA-Public Use
  Company Number: US-CELGENEUS-163-21880-14053638

PATIENT
  Age: 67 Year
  Sex: Male
  Weight: 139.83 kg

DRUGS (10)
  1. REVLIMID [Suspect]
     Indication: PLASMA CELL MYELOMA
     Dosage: 10 MILLIGRAM
     Route: 048
     Dates: start: 20140107, end: 20140515
  2. REVLIMID [Suspect]
     Dosage: 10 MILLIGRAM
     Route: 048
     Dates: start: 2014
  3. VELCADE [Concomitant]
     Indication: PRODUCT USED FOR UNKNOWN INDICATION
     Route: 058
     Dates: start: 2014
  4. VELCADE [Concomitant]
     Route: 058
     Dates: start: 20140527
  5. VELCADE [Concomitant]
     Dosage: PAST
     Route: 065
  6. DEXAMETHASONE [Concomitant]
     Indication: PRODUCT USED FOR UNKNOWN INDICATION
     Route: 065
     Dates: start: 2014
  7. DEXAMETHASONE [Concomitant]
     Route: 065
     Dates: start: 20140527
  8. DEXAMETHASONE [Concomitant]
     Dosage: PAST
     Route: 065
  9. ZOMETA [Concomitant]
     Indication: BONE DISORDER
     Route: 065
  10. FERAHEME [Concomitant]
     Indication: ANAEMIA
     Route: 065

REACTIONS (1)
  - Plasmacytoma [Recovering/Resolving]
